FAERS Safety Report 8187859-X (Version None)
Quarter: 2012Q1

REPORT INFORMATION
  Report Type: 
  Country: None (occurrence: None)
  Receive Date: 20120221
  Receipt Date: 20110902
  Transmission Date: 20120608
  Serious: Yes (Other)
  Sender: FDA-Public Use
  Company Number: PHEH2011US03320

PATIENT
  Age: 63 Year
  Sex: Female
  Weight: 92.5 kg

DRUGS (17)
  1. VENTOLIN [Concomitant]
  2. METFORMIN HCL [Concomitant]
  3. ALENDRONATE SODIUM [Concomitant]
  4. AZATHIOPRINE [Concomitant]
  5. TRAMADOL HYDROCHLORIDE [Concomitant]
  6. TOBI [Suspect]
     Dosage: 300 MG, BID FOR 28 DAYS ON, THEN 28 DAYS OFF, INHALATION
     Route: 055
  7. PULMOZYME [Concomitant]
  8. KLOR-CON [Concomitant]
  9. OMEPRAZOLE [Concomitant]
  10. LASIX [Suspect]
     Dosage: UNK UKN, UNK
     Dates: start: 20100519
  11. MECLIZINE HYDROCHLORIDE (MECLOZINE HYDROCHLORIDE) [Concomitant]
  12. SODIUM CHLORIDE 0.9% [Concomitant]
  13. GABAPENTIN [Concomitant]
  14. ALBUTEROL SULFATE [Concomitant]
  15. PREDNISONE TAB [Concomitant]
  16. MEPRON [Concomitant]
  17. RESTASIS [Concomitant]

REACTIONS (5)
  - TINNITUS [None]
  - OTOTOXICITY [None]
  - VISION BLURRED [None]
  - DIZZINESS [None]
  - DRUG INTERACTION [None]
